FAERS Safety Report 17731850 (Version 10)
Quarter: 2021Q2

REPORT INFORMATION
  Report Type: Spontaneous
  Country: CA (occurrence: CA)
  Receive Date: 20200501
  Receipt Date: 20210409
  Transmission Date: 20210716
  Serious: Yes (Other)
  Sender: FDA-Public Use
  Company Number: CA-CELLTRION INC.-2018CA020883

PATIENT

DRUGS (34)
  1. INFLECTRA [Suspect]
     Active Substance: INFLIXIMAB-DYYB
     Dosage: 10MG/KG, (ROUND TO NEAREST VIAL) EVERY 8 WEEKS
     Route: 042
     Dates: start: 20201007
  2. INFLECTRA [Suspect]
     Active Substance: INFLIXIMAB-DYYB
     Dosage: 10MG/KG, (ROUND TO NEAREST VIAL) EVERY 8 WEEKS
     Route: 042
     Dates: start: 20200220
  3. INFLECTRA [Suspect]
     Active Substance: INFLIXIMAB-DYYB
     Dosage: 5 MG/KG, EVERY 2, 6 WEEKS THEN EVERY 8 WEEKS
     Route: 042
     Dates: start: 20181220
  4. INFLECTRA [Suspect]
     Active Substance: INFLIXIMAB-DYYB
     Dosage: 5 MG/KG, EVERY 0,2,6 WEEKS THEN EVERY 8 WEEKS
     Route: 042
     Dates: start: 20190522
  5. INFLECTRA [Suspect]
     Active Substance: INFLIXIMAB-DYYB
     Dosage: 10MG/KG, EVERY 8 WEEKS
     Route: 042
     Dates: start: 20191231
  6. INFLECTRA [Suspect]
     Active Substance: INFLIXIMAB-DYYB
     Dosage: 10MG/KG, (ROUND TO NEAREST VIAL) EVERY 8 WEEKS
     Route: 042
     Dates: start: 20200226
  7. MICRONOR [Concomitant]
     Active Substance: NORETHINDRONE
     Dosage: UNK
     Route: 065
  8. INFLECTRA [Suspect]
     Active Substance: INFLIXIMAB-DYYB
     Dosage: 5 MG/KG, EVERY 2, 6 WEEKS THEN EVERY 8 WEEKS
     Route: 042
     Dates: start: 20180523
  9. INFLECTRA [Suspect]
     Active Substance: INFLIXIMAB-DYYB
     Dosage: 10MG/KG, (ROUND TO NEAREST VIAL) EVERY 8 WEEKS
     Route: 042
     Dates: start: 20190130
  10. INFLECTRA [Suspect]
     Active Substance: INFLIXIMAB-DYYB
     Dosage: 10MG/KG, (ROUND TO NEAREST VIAL) EVERY 8 WEEKS
     Route: 042
     Dates: start: 20200814
  11. INFLECTRA [Suspect]
     Active Substance: INFLIXIMAB-DYYB
     Indication: CROHN^S DISEASE
     Dosage: 5 MG/KG, EVERY 0, 2, 6 WEEKS THEN EVERY 8 WEEKS
     Route: 042
     Dates: start: 20180511, end: 20181220
  12. INFLECTRA [Suspect]
     Active Substance: INFLIXIMAB-DYYB
     Dosage: 5 MG/KG, EVERY 2, 6 WEEKS THEN EVERY 8 WEEKS
     Route: 042
  13. INFLECTRA [Suspect]
     Active Substance: INFLIXIMAB-DYYB
     Dosage: 5 MG/KG, EVERY 0,2,6 WEEKS THEN EVERY 8 WEEKS
     Route: 042
     Dates: start: 20190522
  14. INFLECTRA [Suspect]
     Active Substance: INFLIXIMAB-DYYB
     Dosage: 10MG/KG, EVERY 8 WEEKS
     Route: 042
     Dates: start: 20190911
  15. INFLECTRA [Suspect]
     Active Substance: INFLIXIMAB-DYYB
     Dosage: 10MG/KG, (ROUND TO NEAREST VIAL) EVERY 8 WEEKS
     Route: 042
     Dates: start: 20200814
  16. INFLECTRA [Suspect]
     Active Substance: INFLIXIMAB-DYYB
     Dosage: 10MG/KG, (ROUND TO NEAREST VIAL) EVERY 8 WEEKS
     Route: 042
     Dates: start: 20201209
  17. INFLECTRA [Suspect]
     Active Substance: INFLIXIMAB-DYYB
     Dosage: 5 MG/KG, EVERY 2, 6 WEEKS THEN EVERY 8 WEEKS
     Route: 042
     Dates: start: 20180620
  18. INFLECTRA [Suspect]
     Active Substance: INFLIXIMAB-DYYB
     Dosage: 5 MG/KG, EVERY 2, 6 WEEKS THEN EVERY 8 WEEKS
     Route: 042
     Dates: start: 20180817
  19. INFLECTRA [Suspect]
     Active Substance: INFLIXIMAB-DYYB
     Dosage: 10MG/KG, (ROUND TO NEAREST VIAL) EVERY 8 WEEKS
     Route: 042
     Dates: start: 20190130
  20. INFLECTRA [Suspect]
     Active Substance: INFLIXIMAB-DYYB
     Dosage: 5 MG/KG, EVERY 0,2,6 WEEKS THEN EVERY 8 WEEKS
     Route: 042
     Dates: start: 20190327
  21. INFLECTRA [Suspect]
     Active Substance: INFLIXIMAB-DYYB
     Dosage: 10MG/KG, (ROUND TO NEAREST VIAL) EVERY 8 WEEKS
     Route: 042
     Dates: start: 20210203
  22. INFLECTRA [Suspect]
     Active Substance: INFLIXIMAB-DYYB
     Dosage: 5 MG/KG, EVERY 2, 6 WEEKS THEN EVERY 8 WEEKS
     Route: 042
     Dates: start: 20181012
  23. INFLECTRA [Suspect]
     Active Substance: INFLIXIMAB-DYYB
     Dosage: 5 MG/KG, EVERY 2, 6 WEEKS THEN EVERY 8 WEEKS
     Route: 042
     Dates: start: 20181207
  24. INFLECTRA [Suspect]
     Active Substance: INFLIXIMAB-DYYB
     Dosage: 5 MG/KG, EVERY 0,2,6 WEEKS THEN EVERY 8 WEEKS
     Route: 042
     Dates: start: 20190717
  25. INFLECTRA [Suspect]
     Active Substance: INFLIXIMAB-DYYB
     Dosage: 5 MG/KG, EVERY 0,2,6 WEEKS THEN EVERY 8 WEEKS
     Route: 042
     Dates: start: 20190717
  26. INFLECTRA [Suspect]
     Active Substance: INFLIXIMAB-DYYB
     Dosage: 10MG/KG, EVERY 8 WEEKS
     Route: 042
     Dates: start: 20190911
  27. INFLECTRA [Suspect]
     Active Substance: INFLIXIMAB-DYYB
     Dosage: 10MG/KG, EVERY 8 WEEKS
     Route: 042
     Dates: start: 20191106
  28. INFLECTRA [Suspect]
     Active Substance: INFLIXIMAB-DYYB
     Dosage: 10MG/KG, EVERY 8 WEEKS
     Route: 042
     Dates: start: 20191231
  29. INFLECTRA [Suspect]
     Active Substance: INFLIXIMAB-DYYB
     Dosage: 5 MG/KG, EVERY 2, 6 WEEKS THEN EVERY 8 WEEKS (RESCUE DOSE)
     Route: 042
     Dates: start: 20181218
  30. INFLECTRA [Suspect]
     Active Substance: INFLIXIMAB-DYYB
     Dosage: RESCUE DOSE
     Route: 042
     Dates: start: 201812
  31. INFLECTRA [Suspect]
     Active Substance: INFLIXIMAB-DYYB
     Dosage: 10MG/KG, (ROUND TO NEAREST VIAL) EVERY 8 WEEKS
     Route: 042
     Dates: start: 20200422
  32. INFLECTRA [Suspect]
     Active Substance: INFLIXIMAB-DYYB
     Dosage: 10MG/KG, (ROUND TO NEAREST VIAL) EVERY 8 WEEKS
     Route: 042
     Dates: start: 20200617
  33. INFLECTRA [Suspect]
     Active Substance: INFLIXIMAB-DYYB
     Dosage: 10MG/KG, (ROUND TO NEAREST VIAL) EVERY 8 WEEKS
     Route: 042
     Dates: start: 20200814
  34. INFLECTRA [Suspect]
     Active Substance: INFLIXIMAB-DYYB
     Dosage: 10MG/KG, (ROUND TO NEAREST VIAL) EVERY 8 WEEKS
     Route: 042
     Dates: start: 20210331

REACTIONS (10)
  - Poor venous access [Unknown]
  - Incorrect dose administered [Unknown]
  - Anal fissure [Unknown]
  - Condition aggravated [Not Recovered/Not Resolved]
  - Maternal exposure during pregnancy [Unknown]
  - Soft tissue infection [Unknown]
  - Inappropriate schedule of product administration [Unknown]
  - Alopecia [Unknown]
  - Asthma [Unknown]
  - Migraine [Unknown]

NARRATIVE: CASE EVENT DATE: 2018
